FAERS Safety Report 8050878-8 (Version None)
Quarter: 2012Q1

REPORT INFORMATION
  Report Type: 
  Country: None (occurrence: None)
  Receive Date: 20120117
  Receipt Date: 20120109
  Transmission Date: 20120608
  Serious: Yes (Hospitalization, Other)
  Sender: FDA-Public Use
  Company Number: PHEH2010US03426

PATIENT
  Sex: Female
  Weight: 56 kg

DRUGS (42)
  1. ZOMETA [Suspect]
  2. ZANTAC [Concomitant]
  3. MEGACE [Concomitant]
  4. HYDROCODONE BITARTRATE [Concomitant]
  5. NEUPOGEN [Concomitant]
  6. MORPHINE [Concomitant]
  7. FENTANYL [Concomitant]
  8. TAMOXIFEN CITRATE [Concomitant]
  9. TAXOL [Concomitant]
  10. DURAGESIC-100 [Concomitant]
  11. KEFLEX [Concomitant]
  12. WELLBUTRIN [Concomitant]
     Dosage: 150 MG, BID
  13. ROSUVASTATIN [Concomitant]
  14. POTASSIUM CHLORIDE [Concomitant]
  15. CLONAZEPAM [Concomitant]
  16. AMBIEN [Concomitant]
  17. BUSPIRONE HCL [Concomitant]
  18. ELAVIL [Concomitant]
  19. TYKERB [Concomitant]
  20. AREDIA [Suspect]
     Indication: METASTASES TO BONE
     Dates: start: 19990301, end: 19990801
  21. HERCEPTIN [Concomitant]
  22. PRILOSEC [Concomitant]
  23. XELODA [Concomitant]
  24. NAPROXEN [Concomitant]
  25. DOCUSATE [Concomitant]
  26. ALTEPLASE [Concomitant]
  27. IBUPROFEN [Concomitant]
  28. BENADRYL [Concomitant]
  29. DECADRON [Concomitant]
     Dosage: 10 MG,
     Route: 042
  30. ZOFRAN [Concomitant]
  31. LOVASTATIN [Concomitant]
     Dosage: 40 MG, QD
  32. NAVELBINE [Concomitant]
  33. DIAZEPAM [Concomitant]
     Dosage: 5 MG, TID
  34. OXYCONTIN [Concomitant]
  35. DEXAMETHASONE TAB [Concomitant]
  36. TAXOTERE [Concomitant]
     Dosage: 45 MG,
     Route: 042
  37. LISINOPRIL [Concomitant]
     Dosage: 10 MG, QD
  38. HEPARIN [Concomitant]
  39. PERIDEX [Concomitant]
  40. MEGESTROL ACETATE [Concomitant]
  41. PAXIL [Concomitant]
  42. PROMETHAZINE [Concomitant]

REACTIONS (82)
  - PAIN [None]
  - OSTEOMYELITIS [None]
  - INTESTINAL ULCER [None]
  - HYPERLIPIDAEMIA [None]
  - BLOOD CHOLESTEROL INCREASED [None]
  - DIARRHOEA [None]
  - GROIN PAIN [None]
  - ABNORMAL LOSS OF WEIGHT [None]
  - ANXIETY [None]
  - BONE FRAGMENTATION [None]
  - NEUTROPENIA [None]
  - HYPERGLYCAEMIA [None]
  - CARDIAC FAILURE CHRONIC [None]
  - RENAL FAILURE [None]
  - CONSTIPATION [None]
  - FALL [None]
  - ABDOMINAL HERNIA [None]
  - FEAR [None]
  - INJURY [None]
  - NEOPLASM PROGRESSION [None]
  - SUICIDE ATTEMPT [None]
  - ABDOMINAL PAIN UPPER [None]
  - MUSCULOSKELETAL STIFFNESS [None]
  - PATHOLOGICAL FRACTURE [None]
  - GASTROINTESTINAL HAEMORRHAGE [None]
  - COMPRESSION FRACTURE [None]
  - OSTEOARTHRITIS [None]
  - BACK PAIN [None]
  - LEFT VENTRICULAR DYSFUNCTION [None]
  - GASTRITIS [None]
  - DYSPEPSIA [None]
  - WOUND [None]
  - WEIGHT INCREASED [None]
  - HIP FRACTURE [None]
  - HYPOAESTHESIA [None]
  - PERICARDIAL EFFUSION [None]
  - BLADDER DISORDER [None]
  - OSTEONECROSIS OF JAW [None]
  - DISABILITY [None]
  - ANHEDONIA [None]
  - SINUS TACHYCARDIA [None]
  - BENIGN GASTRIC NEOPLASM [None]
  - HYPERTENSION [None]
  - PYREXIA [None]
  - CHILLS [None]
  - PAIN IN JAW [None]
  - PALMAR-PLANTAR ERYTHRODYSAESTHESIA SYNDROME [None]
  - AORTIC VALVE INCOMPETENCE [None]
  - GASTRIC POLYPS [None]
  - NEUROPATHY PERIPHERAL [None]
  - CARDIOMYOPATHY [None]
  - OEDEMA PERIPHERAL [None]
  - HYPOKALAEMIA [None]
  - DYSURIA [None]
  - URINARY RETENTION [None]
  - HEADACHE [None]
  - EJECTION FRACTION DECREASED [None]
  - VISION BLURRED [None]
  - SPINAL COMPRESSION FRACTURE [None]
  - HAEMATOCHEZIA [None]
  - EXPOSED BONE IN JAW [None]
  - MUSCULOSKELETAL CHEST PAIN [None]
  - KYPHOSIS [None]
  - TRICUSPID VALVE INCOMPETENCE [None]
  - HEPATITIS B [None]
  - GAIT DISTURBANCE [None]
  - ARTHROFIBROSIS [None]
  - TOOTH LOSS [None]
  - NEOPLASM MALIGNANT [None]
  - BONE LESION [None]
  - COLITIS ULCERATIVE [None]
  - HYPOTENSION [None]
  - ANAEMIA [None]
  - DEPRESSION [None]
  - RADICULOPATHY [None]
  - FATIGUE [None]
  - ARTHRALGIA [None]
  - MUSCLE STRAIN [None]
  - ARTERIOSCLEROSIS [None]
  - HIATUS HERNIA [None]
  - PELVIC FRACTURE [None]
  - DYSPNOEA [None]
